FAERS Safety Report 7885271 (Version 3)
Quarter: 2016Q1

REPORT INFORMATION
  Report Type: Spontaneous
  Country: GB (occurrence: GB)
  Receive Date: 20110404
  Receipt Date: 20160328
  Transmission Date: 20160526
  Serious: Yes (Disabling, Other)
  Sender: FDA-Public Use
  Company Number: GB-WATSON-2011-04315

PATIENT
  Age: 46 Year
  Sex: Female
  Weight: 83 kg

DRUGS (27)
  1. SODIUM CHLORIDE. [Suspect]
     Active Substance: SODIUM CHLORIDE
     Dosage: 250 ML, TOTAL
     Route: 040
     Dates: start: 20101215, end: 20101215
  2. PACLITAXEL. [Suspect]
     Active Substance: PACLITAXEL
     Dosage: 157 MG, TOTAL
     Route: 042
     Dates: start: 20101208, end: 20101208
  3. SODIUM CHLORIDE. [Suspect]
     Active Substance: SODIUM CHLORIDE
     Dosage: 250 ML, TOTAL
     Route: 040
     Dates: start: 20110119, end: 20110119
  4. SODIUM CHLORIDE. [Suspect]
     Active Substance: SODIUM CHLORIDE
     Dosage: 250 ML, TOTAL
     Route: 040
     Dates: start: 20101222, end: 20101222
  5. SODIUM CHLORIDE. [Suspect]
     Active Substance: SODIUM CHLORIDE
     Indication: BREAST CANCER
     Dosage: 250 ML, TOTAL
     Route: 040
     Dates: start: 20110223, end: 20110223
  6. SODIUM CHLORIDE. [Suspect]
     Active Substance: SODIUM CHLORIDE
     Dosage: 250 ML, TOTAL
     Route: 040
     Dates: start: 20110215, end: 20110215
  7. SODIUM CHLORIDE. [Suspect]
     Active Substance: SODIUM CHLORIDE
     Dosage: 250 ML, TOTAL
     Route: 040
     Dates: start: 20110120, end: 20110120
  8. PACLITAXEL. [Suspect]
     Active Substance: PACLITAXEL
     Dosage: 157 MG, TOTAL
     Route: 042
     Dates: start: 20110202, end: 20110202
  9. SODIUM CHLORIDE. [Suspect]
     Active Substance: SODIUM CHLORIDE
     Dosage: 100 ML, TOTAL, 30 MINUTES BEFORE PACLITAXEL
     Route: 040
  10. PACLITAXEL. [Suspect]
     Active Substance: PACLITAXEL
     Dosage: 157 MG, TOTAL
     Route: 042
     Dates: start: 20110105, end: 20110105
  11. PACLITAXEL. [Suspect]
     Active Substance: PACLITAXEL
     Dosage: 157 MG, TOTAL
     Route: 042
     Dates: start: 20101229, end: 20101229
  12. SODIUM CHLORIDE. [Suspect]
     Active Substance: SODIUM CHLORIDE
     Dosage: 250 ML, TOTAL
     Route: 040
     Dates: start: 20110202, end: 20110202
  13. PACLITAXEL. [Suspect]
     Active Substance: PACLITAXEL
     Dosage: 157 MG, TOTAL
     Route: 042
     Dates: start: 20110215, end: 20110215
  14. ALOXI [Suspect]
     Active Substance: PALONOSETRON HYDROCHLORIDE
     Indication: PRODUCT USED FOR UNKNOWN INDICATION
     Dosage: 250 MG, UNK
     Route: 040
     Dates: start: 20101208
  15. SODIUM CHLORIDE. [Suspect]
     Active Substance: SODIUM CHLORIDE
     Dosage: 250 ML, TOTAL
     Route: 040
     Dates: start: 20110105, end: 20110105
  16. SODIUM CHLORIDE. [Suspect]
     Active Substance: SODIUM CHLORIDE
     Dosage: 250 ML, TOTAL
     Route: 040
     Dates: start: 20101208, end: 20101208
  17. CHLORPHENAMINE [Suspect]
     Active Substance: CHLORPHENIRAMINE MALEATE
     Indication: PRODUCT USED FOR UNKNOWN INDICATION
     Dosage: 10 MG, UNK
     Route: 040
     Dates: start: 20101208
  18. DEXAMETHASONE. [Suspect]
     Active Substance: DEXAMETHASONE
     Indication: PRODUCT USED FOR UNKNOWN INDICATION
     Dosage: 8 MG, UNK
     Route: 042
     Dates: start: 20101208
  19. PACLITAXEL. [Suspect]
     Active Substance: PACLITAXEL
     Indication: BREAST CANCER
     Dosage: 100 MG, TOTAL
     Route: 042
     Dates: start: 20110223, end: 20110223
  20. PACLITAXEL. [Suspect]
     Active Substance: PACLITAXEL
     Dosage: 157 MG, TOTAL
     Route: 042
     Dates: start: 20110119, end: 20110119
  21. PACLITAXEL. [Suspect]
     Active Substance: PACLITAXEL
     Dosage: 157 MG, TOTAL
     Route: 042
     Dates: start: 20110112, end: 20110112
  22. PACLITAXEL. [Suspect]
     Active Substance: PACLITAXEL
     Dosage: 157 MG, TOTAL
     Route: 042
     Dates: start: 20101222, end: 20101222
  23. PACLITAXEL. [Suspect]
     Active Substance: PACLITAXEL
     Dosage: 157 MG, TOTAL
     Route: 042
     Dates: start: 20101215, end: 20101215
  24. SODIUM CHLORIDE. [Suspect]
     Active Substance: SODIUM CHLORIDE
     Dosage: 250 ML, TOTAL
     Route: 040
     Dates: start: 20101229, end: 20101229
  25. SODIUM CHLORIDE. [Suspect]
     Active Substance: SODIUM CHLORIDE
     Dosage: 100 ML, TOTAL, , 30 MINUTES BEFORE PACLITAXEL
     Route: 040
     Dates: start: 20101208, end: 20101208
  26. PACLITAXEL. [Suspect]
     Active Substance: PACLITAXEL
     Dosage: 157 MG, TOTAL
     Route: 042
     Dates: start: 20110120, end: 20110120
  27. RANITIDINE [Suspect]
     Active Substance: RANITIDINE\RANITIDINE HYDROCHLORIDE
     Indication: PRODUCT USED FOR UNKNOWN INDICATION
     Dosage: 50 MG, UNK
     Route: 040
     Dates: start: 20101208

REACTIONS (1)
  - Neuropathy peripheral [Not Recovered/Not Resolved]

NARRATIVE: CASE EVENT DATE: 201102
